FAERS Safety Report 7531815-9 (Version None)
Quarter: 2011Q2

REPORT INFORMATION
  Report Type: 
  Country: None (occurrence: None)
  Receive Date: 20110608
  Receipt Date: 20110531
  Transmission Date: 20111010
  Serious: Yes (Hospitalization)
  Sender: FDA-Public Use
  Company Number: DE-ROCHE-780801

PATIENT
  Sex: Male
  Weight: 68 kg

DRUGS (5)
  1. ZOMETA [Concomitant]
     Route: 042
     Dates: start: 20110228
  2. DIPYRONE TAB [Concomitant]
     Dosage: IF REQUIRED
  3. BEVACIZUMAB [Suspect]
     Indication: METASTATIC RENAL CELL CARCINOMA
     Route: 042
     Dates: start: 20110406, end: 20110518
  4. ACETAMINOPHEN [Concomitant]
     Dosage: IF REQUIRED
  5. INTERFERON ALFA [Suspect]
     Indication: METASTATIC RENAL CELL CARCINOMA
     Dosage: ON DAY 1,3,5,8,10,12,15,17,19,22,24,26 OF A CYCLE OF 4 WEEKS
     Route: 058
     Dates: start: 20110406, end: 20110530

REACTIONS (1)
  - HEPATIC FAILURE [None]
